FAERS Safety Report 7898125-1 (Version None)
Quarter: 2011Q4

REPORT INFORMATION
  Report Type: 
  Country: None (occurrence: None)
  Receive Date: 20111107
  Receipt Date: 20111026
  Transmission Date: 20120403
  Serious: No
  Sender: FDA-Public Use
  Company Number: US-B.I. PHARMACEUTICALS,INC./RIDGEFIELD-2011-BP-23887BP

PATIENT
  Age: 72 Year
  Sex: Male

DRUGS (6)
  1. DIOVAN [Concomitant]
     Dates: start: 20100901
  2. LEVOTHYROXINE SODIUM [Concomitant]
     Dates: start: 20050301
  3. PRADAXA [Suspect]
     Indication: ATRIAL FIBRILLATION
     Dosage: 300 MG
     Dates: start: 20110301, end: 20111011
  4. AMLODIPINE [Concomitant]
     Dates: start: 20100301
  5. CRESTOR [Concomitant]
     Dates: start: 20081101
  6. ALLOPURINOL [Concomitant]
     Dates: start: 20101001

REACTIONS (3)
  - DRY MOUTH [None]
  - DRY EYE [None]
  - POLLAKIURIA [None]
